FAERS Safety Report 23481905 (Version 2)
Quarter: 2025Q2

REPORT INFORMATION
  Report Type: Spontaneous
  Country: US (occurrence: US)
  Receive Date: 20240205
  Receipt Date: 20250609
  Transmission Date: 20250716
  Serious: Yes (Death, Hospitalization, Other)
  Sender: RANBAXY
  Company Number: US-SUN PHARMACEUTICAL INDUSTRIES LTD-2024R1-429792

PATIENT
  Age: 79 Year
  Sex: Male

DRUGS (1)
  1. NIACIN [Suspect]
     Active Substance: NIACIN
     Indication: Hyperlipidaemia
     Route: 065

REACTIONS (4)
  - Condition aggravated [Fatal]
  - Cholestatic liver injury [Unknown]
  - Hypotension [Unknown]
  - Stupor [Unknown]
